FAERS Safety Report 18551340 (Version 1)
Quarter: 2020Q4

REPORT INFORMATION
  Report Type: Spontaneous
  Country: US (occurrence: US)
  Receive Date: 20201126
  Receipt Date: 20201126
  Transmission Date: 20210114
  Serious: No
  Sender: FDA-Public Use
  Company Number: US-PFIZER INC-2020427781

PATIENT
  Age: 79 Year
  Sex: Female

DRUGS (3)
  1. XELJANZ [Suspect]
     Active Substance: TOFACITINIB CITRATE
     Dosage: 5 MG, DAILY
  2. XELJANZ [Suspect]
     Active Substance: TOFACITINIB CITRATE
     Dosage: 5 MG, ALTERNATE DAY (EVERY OTHER DAY)
  3. XELJANZ [Suspect]
     Active Substance: TOFACITINIB CITRATE
     Indication: RHEUMATOID ARTHRITIS
     Dosage: 1 TABLET, ALTERNATE DAY
     Route: 048

REACTIONS (7)
  - Off label use [Unknown]
  - Product use issue [Unknown]
  - Aspartate aminotransferase increased [Unknown]
  - Nocturia [Unknown]
  - Liver function test increased [Unknown]
  - Alanine aminotransferase increased [Unknown]
  - Dry eye [Unknown]
